FAERS Safety Report 10356668 (Version 1)
Quarter: 2014Q3

REPORT INFORMATION
  Report Type: Spontaneous
  Country: GB (occurrence: GB)
  Receive Date: 20140801
  Receipt Date: 20140801
  Transmission Date: 20150326
  Serious: Yes (Hospitalization, Disabling)
  Sender: FDA-Public Use
  Company Number: GB-EISAI INC-E2007-01830-SPO-GB

PATIENT
  Age: 57 Year
  Sex: Female
  Weight: 63 kg

DRUGS (11)
  1. LACOSAMIDE [Concomitant]
     Active Substance: LACOSAMIDE
  2. PREGABALIN. [Concomitant]
     Active Substance: PREGABALIN
  3. RANTIDINE [Concomitant]
  4. FYCOMPA [Suspect]
     Active Substance: PERAMPANEL
     Indication: TEMPORAL LOBE EPILEPSY
     Dosage: UNKNOWN
     Route: 048
     Dates: start: 20131105, end: 20140701
  5. TRAMADOL [Concomitant]
     Active Substance: TRAMADOL
  6. CITALOPRAM [Concomitant]
     Active Substance: CITALOPRAM HYDROBROMIDE
  7. LEVETIRACETAM. [Concomitant]
     Active Substance: LEVETIRACETAM
  8. LORAZEPAM. [Concomitant]
     Active Substance: LORAZEPAM
  9. DIAZEPAM. [Concomitant]
     Active Substance: DIAZEPAM
  10. HALOPERIDOL. [Concomitant]
     Active Substance: HALOPERIDOL
  11. CLOBAZAM [Concomitant]
     Active Substance: CLOBAZAM

REACTIONS (3)
  - Psychotic disorder [Recovering/Resolving]
  - Hallucination [Recovering/Resolving]
  - Aggression [Recovering/Resolving]

NARRATIVE: CASE EVENT DATE: 20140610
